FAERS Safety Report 16072515 (Version 3)
Quarter: 2019Q1

REPORT INFORMATION
  Report Type: Spontaneous
  Country: CA (occurrence: CA)
  Receive Date: 20190314
  Receipt Date: 20190321
  Transmission Date: 20190418
  Serious: Yes (Death, Life-Threatening, Hospitalization, Other)
  Sender: FDA-Public Use
  Company Number: CA-PFIZER INC-2019112046

PATIENT
  Age: 71 Year
  Sex: Female

DRUGS (2)
  1. PACLITAXEL. [Suspect]
     Active Substance: PACLITAXEL
     Indication: ENDOMETRIAL STROMAL SARCOMA
     Dosage: UNK, CYCLIC ONCE EVERY 1 CYCLE
     Route: 042
     Dates: start: 20140210
  2. CARBOPLATIN. [Suspect]
     Active Substance: CARBOPLATIN
     Indication: ENDOMETRIAL STROMAL SARCOMA
     Dosage: UNK, CYCLIC ONCE EVERY 1 CYCLE
     Route: 042
     Dates: start: 20140210

REACTIONS (2)
  - Tumour lysis syndrome [Fatal]
  - Chronic kidney disease [Fatal]

NARRATIVE: CASE EVENT DATE: 20140214
